FAERS Safety Report 11985171 (Version 1)
Quarter: 2016Q1

REPORT INFORMATION
  Report Type: Spontaneous
  Country: CN (occurrence: CN)
  Receive Date: 20160201
  Receipt Date: 20160201
  Transmission Date: 20160526
  Serious: Yes (Other)
  Sender: FDA-Public Use
  Company Number: CN-ABBVIE-16P-035-1550635-00

PATIENT
  Age: 22 Year
  Sex: Male

DRUGS (2)
  1. PHENYTOIN SODIUM. [Concomitant]
     Active Substance: PHENYTOIN SODIUM
     Indication: PRODUCT USED FOR UNKNOWN INDICATION
     Dates: start: 2010
  2. DEPAKINE CHRONO [Suspect]
     Active Substance: VALPROATE SODIUM
     Indication: EPILEPSY
     Dosage: EXTENDED RELEASE
     Route: 048
     Dates: start: 201511

REACTIONS (7)
  - Epilepsy [Unknown]
  - Dyskinesia [Unknown]
  - Dizziness [Not Recovered/Not Resolved]
  - Salivary hypersecretion [Unknown]
  - Headache [Not Recovered/Not Resolved]
  - Tremor [Unknown]
  - Bruxism [Unknown]
